FAERS Safety Report 16445323 (Version 2)
Quarter: 2019Q3

REPORT INFORMATION
  Report Type: Spontaneous
  Country: US (occurrence: US)
  Receive Date: 20190618
  Receipt Date: 20190709
  Transmission Date: 20191004
  Serious: Yes (Hospitalization)
  Sender: FDA-Public Use
  Company Number: US-ROCHE-2339127

PATIENT
  Age: 22 Year
  Sex: Male

DRUGS (1)
  1. CATHFLO ACTIVASE [Suspect]
     Active Substance: ALTEPLASE
     Indication: FIBRINOUS BRONCHITIS
     Dosage: RECONSTITUTED WITH NORMAL SALINE ;ONGOING: YES
     Route: 055

REACTIONS (4)
  - Cardiac failure [Recovering/Resolving]
  - Intentional product use issue [Unknown]
  - Polyuria [Unknown]
  - Off label use [Unknown]

NARRATIVE: CASE EVENT DATE: 20190612
